FAERS Safety Report 10678350 (Version 1)
Quarter: 2014Q4

REPORT INFORMATION
  Report Type: Spontaneous
  Country: FR (occurrence: None)
  Receive Date: 20141223
  Receipt Date: 20141223
  Transmission Date: 20150529
  Serious: Yes (Life-Threatening)
  Sender: FDA-Public Use
  Company Number: 8002109

PATIENT
  Age: 23 Year
  Sex: Female

DRUGS (3)
  1. FLAGYL [Suspect]
     Active Substance: METRONIDAZOLE\METRONIDAZOLE HYDROCHLORIDE
     Indication: DIARRHOEA
     Dosage: 1500 MG (500 MG, 3 IN 1 D), ORAL, 3 DAYS
     Route: 048
     Dates: start: 20141024, end: 20141027
  2. LEVETIRACETAM MYLAN (LEVETIRACETAM) (INTRAVENOUS INFUSION) (LEVETIRACETAM) [Suspect]
     Active Substance: LEVETIRACETAM
     Indication: EPILEPSY
     Dosage: 1000 MG (500 MG, 2 IN 1 D), INTRAVENOUS (NOT OTHERWISE SPECIFIED), 2 DAYS
     Route: 042
     Dates: start: 20141025, end: 20141027
  3. LEVOTHYROX (LEVOTHYROXINE SODIUM) [Suspect]
     Active Substance: LEVOTHYROXINE SODIUM
     Indication: HYPOTHYROIDISM
     Dosage: 50 MCG (50 MCG,- 1 IN 1 D) ORAL, 5 DAYS
     Route: 048
     Dates: start: 20141023, end: 20141028

REACTIONS (5)
  - Agranulocytosis [None]
  - Febrile neutropenia [None]
  - Reticulocytosis [None]
  - Thrombocytosis [None]
  - Haemoglobin decreased [None]

NARRATIVE: CASE EVENT DATE: 20141029
